FAERS Safety Report 6538533-4 (Version None)
Quarter: 2010Q1

REPORT INFORMATION
  Report Type: 
  Country: None (occurrence: None)
  Receive Date: 20100113
  Receipt Date: 20100113
  Transmission Date: 20100710
  Serious: Yes (Hospitalization)
  Sender: FDA-Public Use
  Company Number: None

PATIENT
  Age: 64 Year
  Sex: Male
  Weight: 131.9 kg

DRUGS (2)
  1. WARFARIN SODIUM [Suspect]
     Indication: CARDIAC FAILURE CONGESTIVE
     Dosage: 5 MG EVERYDAY PO
     Route: 048
     Dates: start: 20090713, end: 20090729
  2. WARFARIN SODIUM [Suspect]
     Indication: CORONARY ARTERY DISEASE
     Dosage: 5 MG EVERYDAY PO
     Route: 048
     Dates: start: 20090713, end: 20090729

REACTIONS (3)
  - ANAEMIA [None]
  - MUSCLE HAEMORRHAGE [None]
  - MUSCLE STRAIN [None]
